FAERS Safety Report 18920380 (Version 1)
Quarter: 2021Q1

REPORT INFORMATION
  Report Type: Spontaneous
  Country: GB (occurrence: GB)
  Receive Date: 20210222
  Receipt Date: 20210222
  Transmission Date: 20210420
  Serious: Yes (Other)
  Sender: FDA-Public Use
  Company Number: GB-DRREDDYS-GER/UKI/21/0132013

PATIENT
  Age: 51 Year
  Sex: Female

DRUGS (5)
  1. INVITA?D3 [Concomitant]
     Indication: VITAMIN D DECREASED
     Dates: start: 20210120
  2. IBUPROFEN. [Suspect]
     Active Substance: IBUPROFEN
     Indication: PRODUCT USED FOR UNKNOWN INDICATION
  3. ASTRAZENECA COVID?19 VACCINE [Suspect]
     Active Substance: AZD-1222
     Indication: PRODUCT USED FOR UNKNOWN INDICATION
     Dates: start: 20210202
  4. BOOTS VITAMIN C [Concomitant]
     Indication: VITAMIN SUPPLEMENTATION
  5. INFLUENZA VIRUS [Concomitant]
     Active Substance: INFLUENZA VIRUS VACCINE
     Indication: PRODUCT USED FOR UNKNOWN INDICATION
     Dates: start: 20210115

REACTIONS (18)
  - Chills [Recovered/Resolved]
  - Paraesthesia [Recovered/Resolved]
  - Myalgia [Unknown]
  - Constipation [Unknown]
  - Nausea [Unknown]
  - Wheezing [Unknown]
  - Dizziness postural [Recovered/Resolved]
  - Headache [Recovered/Resolved]
  - Dyspnoea [Unknown]
  - Abdominal pain [Unknown]
  - Fatigue [Recovered/Resolved]
  - Chest discomfort [Recovered/Resolved]
  - Diarrhoea [Unknown]
  - Abdominal pain [Recovered/Resolved]
  - Peripheral coldness [Recovered/Resolved]
  - Parosmia [Recovered/Resolved]
  - Vomiting [Unknown]
  - Tremor [Recovered/Resolved]

NARRATIVE: CASE EVENT DATE: 20210202
